FAERS Safety Report 8500035-3 (Version None)
Quarter: 2012Q3

REPORT INFORMATION
  Report Type: 
  Country: None (occurrence: None)
  Receive Date: 20120703
  Receipt Date: 20120703
  Transmission Date: 20120928
  Serious: Yes (Other)
  Sender: FDA-Public Use
  Company Number: None

PATIENT
  Sex: Female

DRUGS (3)
  1. PEG-INTRON [Suspect]
  2. RIBAVIRIN [Suspect]
     Dosage: 400MG Q AM  600 MG QPM PO
     Route: 048
  3. VICTRELIS [Suspect]
     Indication: HEPATITIS C
     Dosage: 200MG Q 8 HOURS 800 MG PO
     Route: 048
     Dates: start: 20120417, end: 20120626

REACTIONS (2)
  - RETINOPATHY [None]
  - FATIGUE [None]
